FAERS Safety Report 5410962-1 (Version None)
Quarter: 2007Q3

REPORT INFORMATION
  Report Type: 
  Country: None (occurrence: None)
  Receive Date: 20070810
  Receipt Date: 20070809
  Transmission Date: 20080115
  Serious: Yes (Other)
  Sender: FDA-Public Use
  Company Number: US-BAYER-200711457BCC

PATIENT
  Sex: Female
  Weight: 54 kg

DRUGS (1)
  1. BACTINE PAIN RELIEVING CLEANSING SPRAY [Suspect]
     Indication: DRUG USE FOR UNKNOWN INDICATION
     Route: 061

REACTIONS (1)
  - CAUSTIC INJURY [None]
